FAERS Safety Report 17389528 (Version 2)
Quarter: 2020Q1

REPORT INFORMATION
  Report Type: Spontaneous
  Country: US (occurrence: US)
  Receive Date: 20200207
  Receipt Date: 20200326
  Transmission Date: 20200409
  Serious: No
  Sender: FDA-Public Use
  Company Number: US-GW PHARMA-202001USGW00386

PATIENT

DRUGS (1)
  1. EPIDIOLEX [Suspect]
     Active Substance: CANNABIDIOL
     Indication: SEIZURE
     Dosage: STARTED LAST YEAR, UNK
     Route: 048
     Dates: start: 2019

REACTIONS (3)
  - Product complaint [Unknown]
  - Seizure [Recovered/Resolved]
  - Drug ineffective [Unknown]
